FAERS Safety Report 5393572-4 (Version None)
Quarter: 2007Q3

REPORT INFORMATION
  Report Type: 
  Country: None (occurrence: None)
  Receive Date: 20070719
  Receipt Date: 20070719
  Transmission Date: 20080115
  Serious: Yes (Other)
  Sender: FDA-Public Use
  Company Number: None

PATIENT
  Age: 52 Year
  Sex: Male
  Weight: 80.2867 kg

DRUGS (2)
  1. BENICAR [Suspect]
     Indication: HYPERTENSION
     Dosage: 40MG QD PO
     Route: 048
     Dates: start: 20070119, end: 20070521
  2. BENICAR [Suspect]
     Indication: TYPE 2 DIABETES MELLITUS
     Dosage: 40MG QD PO
     Route: 048
     Dates: start: 20070119, end: 20070521

REACTIONS (1)
  - OEDEMA PERIPHERAL [None]
